FAERS Safety Report 6380645-2 (Version None)
Quarter: 2009Q3

REPORT INFORMATION
  Report Type: 
  Country: None (occurrence: None)
  Receive Date: 20090924
  Receipt Date: 20090914
  Transmission Date: 20100115
  Serious: Yes (Hospitalization, Other)
  Sender: FDA-Public Use
  Company Number: 2009-03744

PATIENT
  Age: 77 Year
  Sex: Male
  Weight: 83.7 kg

DRUGS (2)
  1. VELCADE [Suspect]
     Indication: NON-HODGKIN'S LYMPHOMA
     Dosage: 1.8 MG, INTRAVENOUS
     Route: 042
     Dates: start: 20090727, end: 20090810
  2. BEXXAR [Suspect]
     Indication: NON-HODGKIN'S LYMPHOMA
     Dosage: INTRAVENOUS
     Route: 042
     Dates: start: 20090722, end: 20090729

REACTIONS (3)
  - HERPES ZOSTER [None]
  - NON-CARDIAC CHEST PAIN [None]
  - PYREXIA [None]
